FAERS Safety Report 23294275 (Version 1)
Quarter: 2023Q4

REPORT INFORMATION
  Report Type: Spontaneous
  Country: US (occurrence: None)
  Receive Date: 20231213
  Receipt Date: 20231213
  Transmission Date: 20240110
  Serious: Yes (Other)
  Sender: FDA-Public Use
  Company Number: None

PATIENT
  Sex: Female

DRUGS (17)
  1. TREMFYA [Suspect]
     Active Substance: GUSELKUMAB
     Indication: Psoriasis
     Dosage: OTHER FREQUENCY : EVERY 8 WEEKS;?
     Route: 058
     Dates: start: 20220428
  2. ATORVASTATIN [Concomitant]
     Active Substance: ATORVASTATIN
  3. CHROMIUM [Concomitant]
     Active Substance: CHROMIC CHLORIDE\CHROMIUM
  4. CINNAMON [Concomitant]
     Active Substance: CINNAMON
  5. CLONAZEPAM [Concomitant]
     Active Substance: CLONAZEPAM
  6. DICLOFENAC [Concomitant]
     Active Substance: DICLOFENAC
  7. ENALAPRIL [Concomitant]
     Active Substance: ENALAPRIL
  8. ESCITALOPRAM [Concomitant]
     Active Substance: ESCITALOPRAM OXALATE
  9. GABAPENTIN [Concomitant]
     Active Substance: GABAPENTIN
  10. GLIPIZIDE [Concomitant]
     Active Substance: GLIPIZIDE
  11. METFORMIN [Concomitant]
     Active Substance: METFORMIN HYDROCHLORIDE
  12. MIRTAZAPINE [Concomitant]
     Active Substance: MIRTAZAPINE
  13. MULTIV WOMEN 50+ [Concomitant]
  14. OMEPRAZOLE [Concomitant]
     Active Substance: OMEPRAZOLE
  15. OZEMPIC [Concomitant]
     Active Substance: SEMAGLUTIDE
  16. ROPINIROLE [Concomitant]
     Active Substance: ROPINIROLE
  17. VARENICLINE [Concomitant]
     Active Substance: VARENICLINE

REACTIONS (2)
  - Therapy interrupted [None]
  - Surgery [None]
